FAERS Safety Report 7755300-4 (Version None)
Quarter: 2011Q3

REPORT INFORMATION
  Report Type: 
  Country: None (occurrence: None)
  Receive Date: 20110914
  Receipt Date: 20110905
  Transmission Date: 20111222
  Serious: Yes (Death, Congenital Anomaly)
  Sender: FDA-Public Use
  Company Number: 2011MA013120

PATIENT

DRUGS (2)
  1. FOLIC ACID [Concomitant]
  2. CITALOPRAM HYDROBROMIDE [Suspect]
     Indication: MATERNAL EXPOSURE DURING PREGNANCY
     Dosage: ;QD;TRPL
     Route: 064
     Dates: start: 20100101, end: 20100821

REACTIONS (4)
  - SPINA BIFIDA [None]
  - MATERNAL DRUGS AFFECTING FOETUS [None]
  - HYDROCEPHALUS [None]
  - ABORTION INDUCED [None]
